FAERS Safety Report 5912243-6 (Version None)
Quarter: 2008Q4

REPORT INFORMATION
  Report Type: 
  Country: None (occurrence: None)
  Receive Date: 20081008
  Receipt Date: 20080926
  Transmission Date: 20090506
  Serious: Yes (Hospitalization)
  Sender: FDA-Public Use
  Company Number: A0750675A

PATIENT
  Age: 72 Year
  Sex: Male
  Weight: 117.3 kg

DRUGS (6)
  1. AVANDIA [Suspect]
     Dosage: 4MG TWICE PER DAY
     Route: 048
     Dates: start: 20020101, end: 20070101
  2. LANTUS [Concomitant]
     Dosage: 25U PER DAY
  3. METFORMIN HCL [Concomitant]
     Dosage: 1000MG TWICE PER DAY
     Route: 048
  4. INSULIN NOVOLIN [Concomitant]
  5. VYTORIN [Concomitant]
  6. HERBAL SUPPLEMENT [Concomitant]

REACTIONS (1)
  - CORONARY ARTERY DISEASE [None]
